FAERS Safety Report 7145288-1 (Version None)
Quarter: 2010Q4

REPORT INFORMATION
  Report Type: 
  Country: None (occurrence: None)
  Receive Date: 20101208
  Receipt Date: 20101129
  Transmission Date: 20110411
  Serious: Yes (Hospitalization)
  Sender: FDA-Public Use
  Company Number: LB-NOVOPROD-317174

PATIENT
  Age: 28 Year
  Sex: Male
  Weight: 144 kg

DRUGS (2)
  1. VICTOZA [Suspect]
     Indication: TYPE 2 DIABETES MELLITUS
     Dosage: 0.6 MG, QD
     Route: 058
     Dates: start: 20101001
  2. VICTOZA [Suspect]
     Indication: OBESITY

REACTIONS (1)
  - DEEP VEIN THROMBOSIS [None]
